FAERS Safety Report 12187625 (Version 1)
Quarter: 2016Q1

REPORT INFORMATION
  Report Type: Spontaneous
  Country: US (occurrence: None)
  Receive Date: 20160316
  Receipt Date: 20160316
  Transmission Date: 20160526
  Serious: Yes (Other)
  Sender: FDA-Public Use
  Company Number: None

PATIENT
  Age: 71 Year
  Sex: Female
  Weight: 74.84 kg

DRUGS (6)
  1. GLUCOSAMINE [Concomitant]
     Active Substance: GLUCOSAMINE
  2. LISINOPRIL. [Concomitant]
     Active Substance: LISINOPRIL
  3. METFORMIN ER 500 MG TABLET CODE ON TABLETS IP178 - WHITE OBLONG [Suspect]
     Active Substance: METFORMIN HYDROCHLORIDE
     Indication: BLOOD GLUCOSE ABNORMAL
     Dosage: 500 MG 2 PILLS 2X DAY MOUTH-ORALLY
     Route: 048
     Dates: end: 20160215
  4. THYROID MED [Concomitant]
  5. HZT [Concomitant]
  6. METFORMIN - NONTIME RELEASE [Concomitant]

REACTIONS (2)
  - Product solubility abnormal [None]
  - Medication residue present [None]

NARRATIVE: CASE EVENT DATE: 20151215
